FAERS Safety Report 10501599 (Version 1)
Quarter: 2014Q4

REPORT INFORMATION
  Report Type: Spontaneous
  Country: US (occurrence: None)
  Receive Date: 20141006
  Receipt Date: 20141006
  Transmission Date: 20150528
  Serious: Yes (Hospitalization)
  Sender: FDA-Public Use
  Company Number: None

PATIENT
  Age: 72 Year
  Sex: Male
  Weight: 60 kg

DRUGS (1)
  1. NITROFURANTOIN. [Suspect]
     Active Substance: NITROFURANTOIN
     Indication: URINARY TRACT INFECTION
     Dates: start: 20140707, end: 20140711

REACTIONS (4)
  - Drug-induced liver injury [None]
  - Vomiting [None]
  - Hepatic steatosis [None]
  - Nausea [None]

NARRATIVE: CASE EVENT DATE: 20140714
